FAERS Safety Report 4627604-5 (Version None)
Quarter: 2005Q2

REPORT INFORMATION
  Report Type: 
  Country: None (occurrence: None)
  Receive Date: 20050406
  Receipt Date: 20050324
  Transmission Date: 20051028
  Serious: Yes (Other)
  Sender: FDA-Public Use
  Company Number: FR-JNJFOC-20050104880

PATIENT
  Sex: Female

DRUGS (13)
  1. REMICADE [Suspect]
     Dosage: 24TH INFUSION
     Route: 042
  2. REMICADE [Suspect]
     Dosage: 2ND INFUSION
     Route: 042
  3. REMICADE [Suspect]
     Indication: RHEUMATOID ARTHRITIS
     Dosage: 1ST INFUSION
     Route: 042
  4. HYPERIUM [Concomitant]
     Route: 049
  5. KARDEGIC [Concomitant]
     Route: 049
  6. SOTALOL HCL [Concomitant]
     Route: 049
  7. NOVATREX [Concomitant]
     Indication: RHEUMATOID ARTHRITIS
     Route: 049
  8. APRANAX [Concomitant]
     Indication: RHEUMATOID ARTHRITIS
     Route: 049
  9. PROPOFAN [Concomitant]
     Route: 049
  10. PROPOFAN [Concomitant]
     Route: 049
  11. PROPOFAN [Concomitant]
     Route: 049
  12. PROPOFAN [Concomitant]
     Route: 049
  13. PROPOFAN [Concomitant]
     Indication: RHEUMATOID ARTHRITIS
     Dosage: 6 TABLETS
     Route: 049

REACTIONS (1)
  - EPIDERMOLYSIS BULLOSA [None]
